FAERS Safety Report 4337576-9 (Version None)
Quarter: 2004Q2

REPORT INFORMATION
  Report Type: 
  Country: None (occurrence: None)
  Receive Date: 20040408
  Receipt Date: 20040326
  Transmission Date: 20050107
  Serious: Yes (Disabling)
  Sender: FDA-Public Use
  Company Number: 2004206031SE

PATIENT
  Sex: Female

DRUGS (12)
  1. CELEBREX [Suspect]
     Dosage: 200 MG, BID
     Dates: start: 20001027, end: 20010901
  2. TIBOLONE [Concomitant]
  3. AMITRIPTYLINE HCL [Concomitant]
  4. DIAZEPAM [Concomitant]
  5. DEXTROPROPOXIFEN (DEXTROPROPOXYPHENE) [Concomitant]
  6. SUMATRIPTAN [Concomitant]
  7. PREDNISOLONE [Concomitant]
  8. CALCIUM [Concomitant]
  9. FOLACIN (CALCIUM PHOSPHATE) [Concomitant]
  10. MULTIVITAMINS (PANTHENOL, RETINOL, ERGOCALCIFEROL) [Concomitant]
  11. LANSOPRAZOLE [Concomitant]
  12. BEHEPAN [Concomitant]

REACTIONS (2)
  - GLOSSODYNIA [None]
  - TONGUE DISORDER [None]
